FAERS Safety Report 12514963 (Version 3)
Quarter: 2016Q3

REPORT INFORMATION
  Report Type: Spontaneous
  Country: US (occurrence: US)
  Receive Date: 20160630
  Receipt Date: 20160921
  Transmission Date: 20161109
  Serious: Yes (Hospitalization)
  Sender: FDA-Public Use
  Company Number: US-JNJFOC-20160522756

PATIENT
  Age: 75 Year
  Sex: Male
  Weight: 103.42 kg

DRUGS (5)
  1. XARELTO [Suspect]
     Active Substance: RIVAROXABAN
     Indication: THROMBOSIS PROPHYLAXIS
     Dosage: WITH MEALS FOR 21 DAYS
     Route: 048
     Dates: start: 20150418, end: 201507
  2. XARELTO [Suspect]
     Active Substance: RIVAROXABAN
     Indication: CEREBROVASCULAR ACCIDENT PROPHYLAXIS
     Dosage: WITH MEALS FOR 21 DAYS
     Route: 048
     Dates: start: 20150418, end: 201507
  3. XARELTO [Suspect]
     Active Substance: RIVAROXABAN
     Indication: ATRIAL FIBRILLATION
     Dosage: WITH MEALS FOR 21 DAYS
     Route: 048
     Dates: start: 20150418, end: 201507
  4. ASPIRIN. [Suspect]
     Active Substance: ASPIRIN
     Indication: PRODUCT USED FOR UNKNOWN INDICATION
     Route: 065
     Dates: end: 201506
  5. PLAVIX [Suspect]
     Active Substance: CLOPIDOGREL BISULFATE
     Indication: PRODUCT USED FOR UNKNOWN INDICATION
     Route: 065
     Dates: end: 201506

REACTIONS (1)
  - Peptic ulcer haemorrhage [Recovered/Resolved]

NARRATIVE: CASE EVENT DATE: 20150607
